FAERS Safety Report 24591324 (Version 3)
Quarter: 2025Q2

REPORT INFORMATION
  Report Type: Spontaneous
  Country: AR (occurrence: AR)
  Receive Date: 20241108
  Receipt Date: 20250421
  Transmission Date: 20250716
  Serious: Yes (Hospitalization, Other)
  Sender: SANDOZ
  Company Number: AR-002147023-NVSC2022AR212827

PATIENT
  Age: 12 Year
  Sex: Male
  Weight: 50 kg

DRUGS (3)
  1. OMNITROPE [Suspect]
     Active Substance: SOMATROPIN
     Indication: Small for dates baby
     Dosage: 1.6 MG, QD
     Route: 058
     Dates: start: 20220709
  2. OMNITROPE [Suspect]
     Active Substance: SOMATROPIN
     Indication: Short stature
     Route: 058
     Dates: start: 20220709
  3. OMNITROPE [Suspect]
     Active Substance: SOMATROPIN
     Route: 058
     Dates: start: 20220709

REACTIONS (12)
  - Dengue fever [Unknown]
  - Epiphyses premature fusion [Unknown]
  - Weight decreased [Unknown]
  - Application site induration [Recovered/Resolved]
  - Application site discolouration [Recovered/Resolved]
  - Weight increased [Unknown]
  - Decreased appetite [Unknown]
  - Application site rash [Recovered/Resolved]
  - Injection site pruritus [Unknown]
  - Injection site pain [Unknown]
  - Blood glucose increased [Not Recovered/Not Resolved]
  - Drug effect less than expected [Unknown]

NARRATIVE: CASE EVENT DATE: 20220914
